FAERS Safety Report 6380411-8 (Version None)
Quarter: 2009Q3

REPORT INFORMATION
  Report Type: 
  Country: None (occurrence: None)
  Receive Date: 20090929
  Receipt Date: 20090919
  Transmission Date: 20100115
  Serious: Yes (Other)
  Sender: FDA-Public Use
  Company Number: AU-JNJFOC-20090906244

PATIENT
  Sex: Female

DRUGS (10)
  1. REMICADE [Suspect]
     Route: 042
     Dates: end: 20090919
  2. REMICADE [Suspect]
     Indication: RHEUMATOID ARTHRITIS
     Dosage: 5 INFUSIONS ON UNSPECIFIED DATES
     Route: 042
     Dates: end: 20090919
  3. METHOTREXATE SODIUM [Concomitant]
  4. ACTONEL COMBI D [Concomitant]
  5. HYDROCORTISONE [Concomitant]
  6. HYDROCORTISONE [Concomitant]
     Indication: PREMEDICATION
     Dosage: UNSPECIFED DATE OF 4TH INFUSION
  7. ACETAMINOPHEN [Concomitant]
  8. ACETAMINOPHEN [Concomitant]
     Indication: PREMEDICATION
     Dosage: UNSPECIFIED DATE FOR 4TH INFUSION
  9. CLARATYNE [Concomitant]
  10. CLARATYNE [Concomitant]
     Indication: PREMEDICATION
     Dosage: UNSPECIFIED DATE OF 4TH INFUSION

REACTIONS (6)
  - ABDOMINAL PAIN [None]
  - FEELING HOT [None]
  - FLUSHING [None]
  - INFUSION RELATED REACTION [None]
  - KNEE ARTHROPLASTY [None]
  - NAUSEA [None]
